FAERS Safety Report 16357013 (Version 1)
Quarter: 2019Q2

REPORT INFORMATION
  Report Type: Spontaneous
  Country: US (occurrence: US)
  Receive Date: 20190527
  Receipt Date: 20190527
  Transmission Date: 20190711
  Serious: No
  Sender: FDA-Public Use
  Company Number: US-ALKEM LABORATORIES LIMITED-US-ALKEM-2018-06808

PATIENT
  Age: 89 Year
  Sex: Female

DRUGS (2)
  1. BENZONATATE. [Suspect]
     Active Substance: BENZONATATE
     Indication: BRONCHITIS
     Dosage: UNKNOWN
     Route: 065
  2. AZITHROMYCIN ANHYDROUS. [Suspect]
     Active Substance: AZITHROMYCIN ANHYDROUS
     Indication: BRONCHITIS
     Dosage: UNKNOWN
     Route: 065

REACTIONS (2)
  - Ageusia [Unknown]
  - Constipation [Unknown]
